FAERS Safety Report 7723798-3 (Version None)
Quarter: 2011Q3

REPORT INFORMATION
  Report Type: 
  Country: None (occurrence: None)
  Receive Date: 20110829
  Receipt Date: 20110818
  Transmission Date: 20111222
  Serious: Yes (Hospitalization)
  Sender: FDA-Public Use
  Company Number: 1000023030

PATIENT
  Age: 39 Year
  Sex: Female

DRUGS (3)
  1. OXYCODONE HCL [Concomitant]
  2. LEXAPRO [Suspect]
     Indication: DEPRESSION
     Dosage: 10 MG (10 MG, 1 IN 1 D), ORAL
     Route: 048
     Dates: start: 20110401
  3. LEXAPRO [Suspect]
     Indication: CHRONIC FATIGUE SYNDROME
     Dosage: 10 MG (10 MG, 1 IN 1 D), ORAL
     Route: 048
     Dates: start: 20110401

REACTIONS (13)
  - MYELODYSPLASTIC SYNDROME [None]
  - DRY MOUTH [None]
  - DIZZINESS [None]
  - CHEST PAIN [None]
  - FATIGUE [None]
  - NIGHT SWEATS [None]
  - BRUXISM [None]
  - FLATULENCE [None]
  - BACK PAIN [None]
  - ABDOMINAL PAIN UPPER [None]
  - MUSCLE SPASMS [None]
  - DYSPNOEA [None]
  - INSOMNIA [None]
